FAERS Safety Report 7537303-8 (Version None)
Quarter: 2011Q2

REPORT INFORMATION
  Report Type: 
  Country: None (occurrence: None)
  Receive Date: 20110603
  Receipt Date: 20110518
  Transmission Date: 20111010
  Serious: Yes (Other)
  Sender: FDA-Public Use
  Company Number: 2011MA006149

PATIENT

DRUGS (6)
  1. TRAMADOL HYDROCHLORIDE [Suspect]
  2. ANTIGLAUCOMA MEDICATION [Concomitant]
  3. ANALGESIC [Concomitant]
  4. VITAMIN TAB [Concomitant]
  5. ANTI-INFECTIVE [Concomitant]
  6. ANTIPSYCHOTIC [Concomitant]

REACTIONS (1)
  - TOXICITY TO VARIOUS AGENTS [None]
